FAERS Safety Report 6517790-4 (Version None)
Quarter: 2009Q4

REPORT INFORMATION
  Report Type: 
  Country: None (occurrence: None)
  Receive Date: 20091224
  Receipt Date: 20091221
  Transmission Date: 20100525
  Serious: Yes (Other)
  Sender: FDA-Public Use
  Company Number: US-ELI_LILLY_AND_COMPANY-US200911003807

PATIENT
  Sex: Male

DRUGS (11)
  1. BYETTA [Suspect]
     Indication: TYPE 2 DIABETES MELLITUS
     Dosage: 5 UG, 2/D
     Route: 058
     Dates: start: 20080101, end: 20080101
  2. BYETTA [Suspect]
     Dosage: 10 UG, 2/D
     Route: 058
     Dates: start: 20080101
  3. BYETTA [Suspect]
     Dosage: 5 UG, 2/D
     Route: 058
     Dates: start: 20090822, end: 20090101
  4. BYETTA [Suspect]
     Dosage: 10 UG, 2/D
     Route: 058
     Dates: start: 20090101, end: 20091028
  5. GLUCOPHAGE [Concomitant]
     Indication: DIABETES MELLITUS
     Dosage: 500 MG, OTHER
     Route: 048
  6. VYTORIN [Concomitant]
     Indication: BLOOD CHOLESTEROL
     Dosage: UNK, DAILY (1/D)
     Route: 048
  7. LANTUS [Concomitant]
     Indication: TYPE 2 DIABETES MELLITUS
     Dosage: 40 U, 2/D
     Route: 058
  8. COZAAR [Concomitant]
     Indication: HYPERTENSION
     Dosage: Q
     Route: 048
  9. ANDROGEL [Concomitant]
     Indication: BLOOD TESTOSTERONE
     Dosage: UNK, DAILY (1/D)
     Route: 062
  10. HYDROCHLOROTHIAZIDE [Concomitant]
     Indication: HYPERTENSION
     Dosage: 12.5 MG, DAILY (1/D)
     Route: 048
  11. ASPIRIN [Concomitant]
     Indication: PROPHYLAXIS
     Dosage: 81 MG, DAILY (1/D)
     Route: 048

REACTIONS (5)
  - BLOOD GLUCOSE INCREASED [None]
  - GLYCOSYLATED HAEMOGLOBIN INCREASED [None]
  - NAUSEA [None]
  - OFF LABEL USE [None]
  - RENAL CELL CARCINOMA [None]
